FAERS Safety Report 24028254 (Version 1)
Quarter: 2024Q2

REPORT INFORMATION
  Report Type: Report from Study
  Country: US (occurrence: US)
  Receive Date: 20240628
  Receipt Date: 20240628
  Transmission Date: 20240715
  Serious: Yes (Death, Other)
  Sender: FDA-Public Use
  Company Number: US-TAKEDA-2024TUS064803

PATIENT
  Age: 59 Year
  Sex: Male

DRUGS (1)
  1. FRUQUINTINIB [Suspect]
     Active Substance: FRUQUINTINIB
     Indication: Rectosigmoid cancer
     Dosage: 5 MILLIGRAM, QD
     Route: 048
     Dates: start: 20240612, end: 20240619

REACTIONS (1)
  - Death [Fatal]

NARRATIVE: CASE EVENT DATE: 20240620
